FAERS Safety Report 23220554 (Version 1)
Quarter: 2023Q4

REPORT INFORMATION
  Report Type: Spontaneous
  Country: US (occurrence: US)
  Receive Date: 20231123
  Receipt Date: 20231123
  Transmission Date: 20240110
  Serious: Yes (Other)
  Sender: FDA-Public Use
  Company Number: US-ACADIA PHARMACEUTICALS INC.-ACA-2023-PIM-005263

PATIENT
  Sex: Female

DRUGS (1)
  1. NUPLAZID [Suspect]
     Active Substance: PIMAVANSERIN TARTRATE
     Dosage: UNK
     Route: 065
     Dates: start: 202310

REACTIONS (10)
  - Near death experience [Unknown]
  - Head injury [Unknown]
  - Road traffic accident [Unknown]
  - Dysstasia [Unknown]
  - Palpitations [Unknown]
  - Fall [Unknown]
  - Confusional state [Unknown]
  - Gait disturbance [Unknown]
  - Hallucination, visual [Unknown]
  - Aggression [Unknown]
